FAERS Safety Report 8924717 (Version 1)
Quarter: 2012Q4

REPORT INFORMATION
  Report Type: 
  Country: US (occurrence: US)
  Receive Date: 20121126
  Receipt Date: 20121126
  Transmission Date: 20130627
  Serious: No
  Sender: FDA-Public Use
  Company Number: US-PFIZER INC-2012293281

PATIENT
  Age: 82 Year
  Sex: Male
  Weight: 77.1 kg

DRUGS (1)
  1. ADVIL [Suspect]
     Indication: CRAMPS IN LEGS
     Dosage: one to two tablets of 200mg as needed
     Route: 048

REACTIONS (3)
  - Poor quality drug administered [Unknown]
  - Therapeutic response unexpected [Unknown]
  - Tablet physical issue [Unknown]
